FAERS Safety Report 16999361 (Version 3)
Quarter: 2019Q4

REPORT INFORMATION
  Report Type: Spontaneous
  Country: FR (occurrence: FR)
  Receive Date: 20191106
  Receipt Date: 20191113
  Transmission Date: 20200122
  Serious: Yes (Hospitalization, Other)
  Sender: FDA-Public Use
  Company Number: FR-PFIZER INC-2019473619

PATIENT
  Age: 64 Year
  Sex: Female

DRUGS (3)
  1. ARACYTINE [Suspect]
     Active Substance: CYTARABINE
     Indication: OCULAR LYMPHOMA
     Dosage: HIGH-DOSE
  2. RITUXIMAB. [Suspect]
     Active Substance: RITUXIMAB
     Indication: OCULAR LYMPHOMA
     Dosage: UNK
  3. METHOTREXATE SODIUM. [Suspect]
     Active Substance: METHOTREXATE SODIUM
     Indication: OCULAR LYMPHOMA
     Dosage: HIGH-DOSE

REACTIONS (4)
  - Off label use [Unknown]
  - Haemophagocytic lymphohistiocytosis [Unknown]
  - Drug intolerance [Unknown]
  - Product use in unapproved indication [Unknown]
